FAERS Safety Report 23748651 (Version 1)
Quarter: 2024Q2

REPORT INFORMATION
  Report Type: Report from Study
  Country: CO (occurrence: CO)
  Receive Date: 20240416
  Receipt Date: 20240416
  Transmission Date: 20240715
  Serious: Yes (Death, Other)
  Sender: FDA-Public Use
  Company Number: CO-AstraZeneca-2023A031557

PATIENT
  Age: 34 Day
  Sex: Female

DRUGS (1)
  1. SYNAGIS [Suspect]
     Active Substance: PALIVIZUMAB
     Indication: Respiratory disorder
     Dosage: MONTHLY

REACTIONS (2)
  - Skin discolouration [Fatal]
  - Death [Fatal]

NARRATIVE: CASE EVENT DATE: 20230111
